FAERS Safety Report 8603676-8 (Version None)
Quarter: 2012Q3

REPORT INFORMATION
  Report Type: 
  Country: None (occurrence: None)
  Receive Date: 20120817
  Receipt Date: 20120807
  Transmission Date: 20120928
  Serious: No
  Sender: FDA-Public Use
  Company Number: US-ASTRAZENECA-2012SE55673

PATIENT
  Age: 28 Year
  Sex: Male

DRUGS (6)
  1. LORATADINE [Concomitant]
     Indication: SEASONAL ALLERGY
  2. HUMIRA [Suspect]
     Indication: CROHN'S DISEASE
     Dosage: 40 MG/0.8 ML, PREFILLED SYRINGE, 40 MG ONE IN TWO WEEK
     Route: 065
     Dates: start: 20120519
  3. ENTOCORT EC [Suspect]
     Dosage: DAILY
     Route: 048
     Dates: start: 20120625
  4. BALSALAZIDE DISODIUM [Concomitant]
     Indication: CROHN'S DISEASE
  5. ACETAMINOPHEN [Concomitant]
     Indication: HEADACHE
  6. ENTOCORT EC [Suspect]
     Dosage: 6 MG DAILY, TAPER REGIMEN
     Route: 048

REACTIONS (4)
  - MILIA [None]
  - RASH MACULO-PAPULAR [None]
  - PRURITUS [None]
  - ACNE [None]
